FAERS Safety Report 21947301 (Version 1)
Quarter: 2023Q1

REPORT INFORMATION
  Report Type: Spontaneous
  Country: DE (occurrence: DE)
  Receive Date: 20230202
  Receipt Date: 20230202
  Transmission Date: 20230417
  Serious: Yes (Congenital Anomaly, Other)
  Sender: FDA-Public Use
  Company Number: DE-ALLERGAN-2302719US

PATIENT
  Sex: Female
  Weight: 2.894 kg

DRUGS (6)
  1. ESCITALOPRAM OXALATE [Suspect]
     Active Substance: ESCITALOPRAM OXALATE
     Indication: Exposure during pregnancy
     Dosage: 10 MG, QD
     Route: 064
     Dates: start: 20210110, end: 20211008
  2. DOXEPIN [Suspect]
     Active Substance: DOXEPIN
     Indication: Exposure during pregnancy
     Dosage: 50 MG, QD
     Route: 064
     Dates: start: 20210110, end: 20211008
  3. PRAMIPEXOLE [Suspect]
     Active Substance: PRAMIPEXOLE
     Indication: Exposure during pregnancy
     Dosage: 180 ?G, QD
     Route: 064
  4. BOOSTRIX [Concomitant]
     Active Substance: TETANUS TOXOID, REDUCED DIPHTHERIA TOXOID AND ACELLULAR PERTUSSIS VACCINE, ADSORBED ANTIGENS
     Indication: Exposure during pregnancy
     Route: 064
     Dates: start: 20210825, end: 20210825
  5. FOLIC ACID [Concomitant]
     Active Substance: FOLIC ACID
     Indication: Exposure during pregnancy
     Route: 064
  6. BENSERAZIDE\LEVODOPA [Concomitant]
     Active Substance: BENSERAZIDE\LEVODOPA
     Indication: Exposure during pregnancy
     Dosage: 100 [MG/D ]
     Route: 064
     Dates: start: 20210110, end: 20210310

REACTIONS (2)
  - Microcephaly [Unknown]
  - Foetal exposure during pregnancy [Unknown]

NARRATIVE: CASE EVENT DATE: 20211001
